FAERS Safety Report 8030166-6 (Version None)
Quarter: 2012Q1

REPORT INFORMATION
  Report Type: 
  Country: None (occurrence: None)
  Receive Date: 20120109
  Receipt Date: 20120102
  Transmission Date: 20120608
  Serious: Yes (Death)
  Sender: FDA-Public Use
  Company Number: US-BAYER-2012-000980

PATIENT
  Age: 18 Year
  Sex: Male

DRUGS (3)
  1. PARACETAMOL + DIPHENHYDRAMINE [Suspect]
     Route: 048
  2. HEROIN [Suspect]
  3. PARACETAMOL + PSEUDOEPHEDRINE + DEXTROMETHORPHAN + DOXYLAMINE [Suspect]
     Route: 048

REACTIONS (2)
  - COMPLETED SUICIDE [None]
  - TOXICITY TO VARIOUS AGENTS [None]
